FAERS Safety Report 24584713 (Version 1)
Quarter: 2024Q4

REPORT INFORMATION
  Report Type: Spontaneous
  Country: US (occurrence: None)
  Receive Date: 20241106
  Receipt Date: 20241106
  Transmission Date: 20250114
  Serious: Yes (Other)
  Sender: Public
  Company Number: None

PATIENT
  Sex: Male

DRUGS (11)
  1. PRALUENT [Suspect]
     Active Substance: ALIROCUMAB
     Indication: Hyperlipidaemia
     Dosage: FREQUENCY : EVERY OTHER WEEK;  1 PEN?FREQ: INJECT 1 PEN UNDER THE SKIN (SUBCUTANEOUS INJECTION) EVER
     Route: 058
     Dates: start: 20220624
  2. AMLODIPINE [Concomitant]
     Active Substance: AMLODIPINE BESYLATE
  3. AMLODIPINE TAB5MG [Concomitant]
  4. AZITHROMYCIN [Concomitant]
     Active Substance: AZITHROMYCIN
  5. CHLORTHALID TAB 25MG [Concomitant]
  6. COQ10 CAP 200MG [Concomitant]
  7. CYANOCOBALAM INJ 1000MCG [Concomitant]
  8. FAMOTIDINE [Concomitant]
     Active Substance: FAMOTIDINE
  9. OLOPATADINE SPR 0.6% [Concomitant]
  10. POT CHLORIDE TAB 20MEQ ER [Concomitant]
  11. SCOPOLAMINE DIS 1 MG/3DAY [Concomitant]

REACTIONS (1)
  - Tumour excision [None]
